FAERS Safety Report 9280682 (Version 1)
Quarter: 2013Q2

REPORT INFORMATION
  Report Type: Spontaneous
  Country: US (occurrence: None)
  Receive Date: 20130508
  Receipt Date: 20130508
  Transmission Date: 20140414
  Serious: Yes (Other)
  Sender: FDA-Public Use
  Company Number: None

PATIENT
  Age: 23 Year
  Sex: Female

DRUGS (1)
  1. MAKENA [Suspect]
     Indication: PREMATURE BABY
     Dosage: 250MG QWK IM
     Route: 030
     Dates: start: 20130410

REACTIONS (3)
  - Treatment failure [None]
  - Abortion spontaneous [None]
  - Maternal exposure during pregnancy [None]
